FAERS Safety Report 9493535 (Version 2)
Quarter: 2013Q3

REPORT INFORMATION
  Report Type: Spontaneous
  Country: US (occurrence: US)
  Receive Date: 20130902
  Receipt Date: 20130904
  Transmission Date: 20140515
  Serious: No
  Sender: FDA-Public Use
  Company Number: US-PFIZER INC-2013250541

PATIENT
  Age: 60 Year
  Sex: Female
  Weight: 77.1 kg

DRUGS (4)
  1. CELEBREX [Suspect]
     Indication: ARTHRITIS
     Dosage: 200 MG ONCE DAILY
     Dates: start: 201308
  2. LISINOPRIL [Concomitant]
     Indication: BLOOD PRESSURE
     Dosage: 10 MG ONCE DAILY
  3. VYTORIN [Concomitant]
     Indication: BLOOD CHOLESTEROL
     Dosage: EZETIMIBE 10 MG/ SIMVASTATIN 80MG ONCE DAILY
  4. PRILOSEC [Concomitant]
     Indication: GASTROOESOPHAGEAL REFLUX DISEASE
     Dosage: 20 MG ONCE DAILY

REACTIONS (1)
  - Pruritus [Not Recovered/Not Resolved]
